FAERS Safety Report 4607278-X (Version None)
Quarter: 2005Q1

REPORT INFORMATION
  Report Type: 
  Country: None (occurrence: None)
  Receive Date: 20050309
  Receipt Date: 20050225
  Transmission Date: 20050727
  Serious: Yes (Death, Hospitalization)
  Sender: FDA-Public Use
  Company Number: A-CH2005-08897

PATIENT
  Age: 29 Year
  Sex: Female
  Weight: 60 kg

DRUGS (7)
  1. TRACLEER [Suspect]
     Indication: PULMONARY HYPERTENSION
     Dosage: 125 MG, BID, ORAL
     Route: 048
     Dates: start: 20040501, end: 20050122
  2. LASILIX(FUROSEMIDE) [Suspect]
     Dosage: 60 MG, ORAL
     Route: 048
     Dates: start: 20040501, end: 20050122
  3. PREVISCAN(FLUINDIONE) [Suspect]
     Dosage: ORAL
     Route: 048
     Dates: start: 20040501, end: 20050122
  4. POTASSIUM CHLORIDE [Suspect]
     Dosage: ORAL
     Route: 048
     Dates: start: 20040501, end: 20050122
  5. OXYGEN (OXYGEN) [Concomitant]
  6. ACETAMINOPHEN [Concomitant]
  7. PAROXETINE HCL [Concomitant]

REACTIONS (9)
  - ABDOMINAL PAIN UPPER [None]
  - ACUTE PULMONARY OEDEMA [None]
  - COAGULATION FACTOR V LEVEL DECREASED [None]
  - CREATININE RENAL CLEARANCE DECREASED [None]
  - HEPATIC FAILURE [None]
  - ISCHAEMIC HEPATITIS [None]
  - PROTHROMBIN TIME PROLONGED [None]
  - PYREXIA [None]
  - VENOOCCLUSIVE DISEASE [None]
